FAERS Safety Report 6236714-0 (Version None)
Quarter: 2009Q2

REPORT INFORMATION
  Report Type: 
  Country: None (occurrence: None)
  Receive Date: 20090619
  Receipt Date: 20090415
  Transmission Date: 20091009
  Serious: No
  Sender: FDA-Public Use
  Company Number: US-ASTRAZENECA-2009UW09492

PATIENT
  Age: 75 Year
  Sex: Female

DRUGS (1)
  1. ATACAND HCT [Suspect]
     Dosage: 32/ 12.5 MG
     Route: 048

REACTIONS (3)
  - ASTHENIA [None]
  - BLOOD PRESSURE DECREASED [None]
  - FATIGUE [None]
